FAERS Safety Report 7608735-4 (Version None)
Quarter: 2011Q3

REPORT INFORMATION
  Report Type: 
  Country: None (occurrence: None)
  Receive Date: 20110714
  Receipt Date: 20110707
  Transmission Date: 20111222
  Serious: Yes (Other)
  Sender: FDA-Public Use
  Company Number: NL-ABBOTT-11P-114-0720728-00

PATIENT
  Sex: Female
  Weight: 80 kg

DRUGS (4)
  1. HUMIRA [Suspect]
     Indication: RHEUMATOID ARTHRITIS
     Route: 058
     Dates: start: 20110201, end: 20110505
  2. EZETIMIBE/SAMVASTATIN [Concomitant]
     Indication: BLOOD CHOLESTEROL INCREASED
     Dosage: 10MG/40MG DAILY
     Dates: start: 20100801
  3. METHOTREXATE [Concomitant]
     Indication: RHEUMATOID ARTHRITIS
     Dosage: 10 TABLETS, ONCE A WEEK
     Dates: start: 20100101
  4. FOLIC ACID [Concomitant]
     Indication: VITAMIN B12
     Dates: start: 20100101

REACTIONS (6)
  - GAIT DISTURBANCE [None]
  - MUSCLE DISORDER [None]
  - MUSCULOSKELETAL DISORDER [None]
  - HYPOAESTHESIA [None]
  - MOBILITY DECREASED [None]
  - DRY MOUTH [None]
